FAERS Safety Report 16146190 (Version 3)
Quarter: 2019Q2

REPORT INFORMATION
  Report Type: Spontaneous
  Country: US (occurrence: US)
  Receive Date: 20190402
  Receipt Date: 20190627
  Transmission Date: 20190711
  Serious: No
  Sender: FDA-Public Use
  Company Number: US-PFIZER INC-2019130687

PATIENT
  Age: 80 Year
  Sex: Female
  Weight: 68.4 kg

DRUGS (2)
  1. SKELAXIN [Suspect]
     Active Substance: METAXALONE
     Indication: MUSCLE TIGHTNESS
     Dosage: 800 MG, AS NEEDED (800MG TABLET, 1 TABLET UP TO 4 TIMES A DAY AS NEEDED)
     Route: 048
  2. SKELAXIN [Suspect]
     Active Substance: METAXALONE
     Indication: PAIN

REACTIONS (1)
  - Therapeutic product effect incomplete [Unknown]
